FAERS Safety Report 4648407-1 (Version None)
Quarter: 2005Q2

REPORT INFORMATION
  Report Type: 
  Country: None (occurrence: None)
  Receive Date: 20050427
  Receipt Date: 20050413
  Transmission Date: 20051028
  Serious: No
  Sender: FDA-Public Use
  Company Number: 02100-JPN-05-0159

PATIENT
  Age: 22 Year
  Sex: Female

DRUGS (6)
  1. CILOSTAZOL [Suspect]
     Indication: CAROTID ARTERY STENOSIS
     Dosage: 100 MG; ORAL
     Route: 048
     Dates: start: 20050318, end: 20050320
  2. CILOSTAZOL [Suspect]
     Indication: SUBCLAVIAN ARTERY STENOSIS
     Dosage: 100 MG; ORAL
     Route: 048
     Dates: start: 20050318, end: 20050320
  3. FERROUS CITRATE [Concomitant]
  4. PREDNISOLONE [Concomitant]
  5. GEFARNATE [Concomitant]
  6. DIPYRIDAMOLE [Concomitant]

REACTIONS (3)
  - ANGIOPATHY [None]
  - INFUSION RELATED REACTION [None]
  - PAIN IN EXTREMITY [None]
